FAERS Safety Report 9269178 (Version 1)
Quarter: 2013Q2

REPORT INFORMATION
  Report Type: Spontaneous
  Country: US (occurrence: US)
  Receive Date: 20130503
  Receipt Date: 20130503
  Transmission Date: 20140414
  Serious: No
  Sender: FDA-Public Use
  Company Number: US-009507513-1304USA015157

PATIENT
  Age: 46 Year
  Sex: Female

DRUGS (3)
  1. SINGULAIR [Suspect]
     Indication: ASTHMA
     Dosage: 5 MG, QD
     Route: 048
     Dates: start: 201212
  2. PULMICORT [Concomitant]
  3. FLONASE [Concomitant]

REACTIONS (4)
  - Urinary retention [Unknown]
  - Weight abnormal [Unknown]
  - Coeliac disease [Unknown]
  - Dizziness [Unknown]
